FAERS Safety Report 24935962 (Version 1)
Quarter: 2025Q1

REPORT INFORMATION
  Report Type: Report from Study
  Country: US (occurrence: US)
  Receive Date: 20250206
  Receipt Date: 20250206
  Transmission Date: 20250409
  Serious: Yes (Death)
  Sender: EXELIXIS
  Company Number: US-EXELIXIS-EXL-2024-000816

PATIENT
  Sex: Male
  Weight: 68.039 kg

DRUGS (10)
  1. CABOMETYX [Suspect]
     Active Substance: CABOZANTINIB S-MALATE
     Indication: Prostate cancer metastatic
     Dosage: 60 MG, QD
     Route: 048
     Dates: start: 20241015, end: 20241029
  2. TYLENOL EXTRA STRENGTH [Concomitant]
     Active Substance: ACETAMINOPHEN
     Indication: Pain
  3. COMBIGAN [Concomitant]
     Active Substance: BRIMONIDINE TARTRATE\TIMOLOL MALEATE
  4. PREDNISOLONE ACETATE [Concomitant]
     Active Substance: PREDNISOLONE ACETATE
  5. TAMSULOSIN [Concomitant]
     Active Substance: TAMSULOSIN
  6. PEPCID [Concomitant]
     Active Substance: FAMOTIDINE
     Indication: Nausea
  7. CABAZITAXEL [Concomitant]
     Active Substance: CABAZITAXEL
  8. CALCIUM CARBONATE\VITAMIN D [Concomitant]
     Active Substance: CALCIUM CARBONATE\VITAMIN D
  9. PREDNISONE [Concomitant]
     Active Substance: PREDNISONE
  10. CYPROHEPTADINE [Concomitant]
     Active Substance: CYPROHEPTADINE

REACTIONS (6)
  - Prostate cancer [Fatal]
  - Drug ineffective [Unknown]
  - Asthenia [Unknown]
  - Hypophagia [Unknown]
  - Bone pain [Unknown]
  - Off label use [Unknown]
